FAERS Safety Report 8410402 (Version 6)
Quarter: 2014Q1

REPORT INFORMATION
  Report Type: Spontaneous
  Country: US (occurrence: US)
  Receive Date: 20120217
  Receipt Date: 20140205
  Transmission Date: 20141002
  Serious: Yes (Other)
  Sender: FDA-Public Use
  Company Number: US-PFIZER INC-2012040637

PATIENT
  Age: 54 Year
  Sex: Male
  Weight: 82.99 kg

DRUGS (12)
  1. PRISTIQ [Suspect]
     Indication: GASTROINTESTINAL DISORDER
     Dosage: 150MG, DAILY
     Route: 048
     Dates: start: 2009
  2. PRISTIQ [Suspect]
     Indication: DEPRESSION
  3. AFEDITAB CR [Concomitant]
     Indication: RAYNAUD^S PHENOMENON
     Dosage: 30 MG, DAILY
  4. CLONAZEPAM [Concomitant]
     Indication: ANXIETY
     Dosage: ONE AND A HALF TABLET OF 1MG IN THE MORNING AND 2MG (TWO TABLETS OF 1MG) AT BED TIME
     Route: 048
  5. METAXALONE [Concomitant]
     Indication: BACK PAIN
     Dosage: 800 MG, 3X/DAY
  6. ABILIFY [Concomitant]
     Indication: DEPRESSION
     Dosage: 5 MG, DAILY
  7. GABAPENTIN [Concomitant]
     Indication: NEUROPATHY PERIPHERAL
     Dosage: 600 MG, 3X/DAY
  8. CREON [Concomitant]
     Indication: GASTRIC DISORDER
     Dosage: THREE CAPSULES OF 24000 UNITS ORALLY WITH HIS MEALS AND ONE CAPSULE OF 24000 UNITS WITH SNACKS
     Route: 048
  9. DOMPERIDONE [Concomitant]
     Indication: HYPERSENSITIVITY
     Dosage: 10 MG, 2X/DAY
  10. DOMPERIDONE [Concomitant]
     Indication: GASTRIC DISORDER
  11. LUNESTA [Concomitant]
     Indication: SLEEP DISORDER
     Dosage: 3 MG, DAILY AT NIGHT
  12. VESICARE [Concomitant]
     Indication: PROSTATIC DISORDER
     Dosage: 5 MG, DAILY

REACTIONS (12)
  - Suicidal ideation [Unknown]
  - Somnolence [Unknown]
  - Withdrawal syndrome [Unknown]
  - Sleep apnoea syndrome [Not Recovered/Not Resolved]
  - Weight increased [Unknown]
  - Disturbance in attention [Not Recovered/Not Resolved]
  - Insomnia [Unknown]
  - Dizziness [Not Recovered/Not Resolved]
  - Vertigo [Unknown]
  - Nausea [Unknown]
  - Dizziness [Unknown]
  - Off label use [Unknown]
